FAERS Safety Report 15746197 (Version 2)
Quarter: 2019Q1

REPORT INFORMATION
  Report Type: Spontaneous
  Country: ES (occurrence: ES)
  Receive Date: 20181220
  Receipt Date: 20190102
  Transmission Date: 20190417
  Serious: Yes (Death)
  Sender: FDA-Public Use
  Company Number: ES-MYLANLABS-2018M1095202

PATIENT
  Age: 82 Year
  Sex: Male

DRUGS (14)
  1. SERETIDE [Concomitant]
     Active Substance: FLUTICASONE PROPIONATE\SALMETEROL XINAFOATE
     Dosage: 25/250 MICROGRAM
     Dates: start: 2010
  2. SOLIFENACINA [Concomitant]
     Indication: URINARY INCONTINENCE
     Dosage: UNK
  3. PROMETAX                           /01383201/ [Concomitant]
     Active Substance: RIVASTIGMINE
     Dosage: UNK
     Dates: start: 201511
  4. PANTOPRAZOLO [Concomitant]
     Active Substance: PANTOPRAZOLE SODIUM
     Dosage: UNK
     Dates: start: 2015
  5. LEVOFLOXACIN. [Suspect]
     Active Substance: LEVOFLOXACIN
     Indication: PNEUMONIA
     Dosage: 500 MILLIGRAM, QD
     Route: 048
     Dates: start: 20180129, end: 20180205
  6. SINEMET [Suspect]
     Active Substance: CARBIDOPA\LEVODOPA
     Indication: PARKINSON^S DISEASE
     Dosage: UNK,200/50 MG, QD
     Route: 048
     Dates: start: 20100915, end: 20180129
  7. CITALOPRAM [Concomitant]
     Active Substance: CITALOPRAM HYDROBROMIDE
     Dosage: 20 MILLIGRAM
     Dates: start: 201111
  8. QUETIAPINA                         /01270901/ [Concomitant]
     Active Substance: QUETIAPINE
     Dosage: UNK
     Dates: start: 2015
  9. SINEMET [Suspect]
     Active Substance: CARBIDOPA\LEVODOPA
     Dosage: UNK, 250/50 MG, Q6H
     Route: 048
     Dates: start: 20111126, end: 20180129
  10. CLOPIDOGREL [Concomitant]
     Active Substance: CLOPIDOGREL BISULFATE
     Dosage: UNK
     Dates: start: 2014
  11. ENALAPRIL [Concomitant]
     Active Substance: ENALAPRIL
     Dosage: UNK
  12. ATORVASTATINA                      /01326101/ [Concomitant]
     Active Substance: ATORVASTATIN
     Indication: ARTERIOSCLEROSIS
     Dosage: 40 MILLIGRAM, QD
     Dates: start: 2014
  13. CLONAZEPAM. [Concomitant]
     Active Substance: CLONAZEPAM
     Dosage: UNK
     Dates: start: 2016
  14. DELTIUS [Concomitant]
     Active Substance: CHOLECALCIFEROL
     Dosage: UNK, 25.000/2.5  INTERNATIONAL UNIT PER MILLILITRE
     Dates: start: 2016

REACTIONS (6)
  - Pseudomembranous colitis [Fatal]
  - Diarrhoea [Fatal]
  - Anuria [Fatal]
  - Dyskinesia [Fatal]
  - Abdominal pain [Fatal]
  - Hypotension [Fatal]

NARRATIVE: CASE EVENT DATE: 20180124
